FAERS Safety Report 5987020-0 (Version None)
Quarter: 2008Q4

REPORT INFORMATION
  Report Type: 
  Country: None (occurrence: None)
  Receive Date: 20081209
  Receipt Date: 20081126
  Transmission Date: 20090506
  Serious: Yes (Hospitalization)
  Sender: FDA-Public Use
  Company Number: B0547933A

PATIENT
  Age: 82 Year
  Sex: Male

DRUGS (4)
  1. FORTUM [Suspect]
     Indication: DIABETIC FOOT INFECTION
     Route: 042
     Dates: start: 20080922, end: 20080924
  2. PREVISCAN [Suspect]
     Indication: ATRIAL FIBRILLATION
     Route: 048
     Dates: end: 20080925
  3. TAZOCILLINE [Suspect]
     Indication: DIABETIC FOOT INFECTION
     Route: 042
     Dates: start: 20080922, end: 20080924
  4. CIPROFLOXACIN HCL [Suspect]
     Indication: DIABETIC FOOT INFECTION
     Route: 042
     Dates: start: 20080922, end: 20080924

REACTIONS (2)
  - DRUG INTERACTION [None]
  - INTERNATIONAL NORMALISED RATIO INCREASED [None]
